FAERS Safety Report 17345913 (Version 1)
Quarter: 2020Q1

REPORT INFORMATION
  Report Type: Spontaneous
  Country: PT (occurrence: PT)
  Receive Date: 20200129
  Receipt Date: 20200129
  Transmission Date: 20200409
  Serious: Yes (Hospitalization, Disabling)
  Sender: FDA-Public Use
  Company Number: PHHY2019PT188940

PATIENT
  Age: 50 Year
  Sex: Female

DRUGS (10)
  1. SILDENAFIL. [Suspect]
     Active Substance: SILDENAFIL
     Indication: VASODILATION PROCEDURE
  2. NIFEDIPINE. [Suspect]
     Active Substance: NIFEDIPINE
     Indication: VASODILATION PROCEDURE
     Dosage: UNK
     Route: 065
  3. CYCLOPHOSPHAMIDE. [Concomitant]
     Active Substance: CYCLOPHOSPHAMIDE
     Indication: PRODUCT USED FOR UNKNOWN INDICATION
     Dosage: UNK
     Route: 065
  4. VENTAVIS [Suspect]
     Active Substance: ILOPROST
     Indication: VASODILATATION
  5. VENTAVIS [Suspect]
     Active Substance: ILOPROST
     Indication: VASODILATION PROCEDURE
  6. VENTAVIS [Suspect]
     Active Substance: ILOPROST
     Indication: PULMONARY FIBROSIS
     Dosage: UNK UNK, QMO
     Route: 042
  7. NITROGLYCERIN ^DUMEX^ [Suspect]
     Active Substance: NITROGLYCERIN
     Indication: VASODILATION PROCEDURE
     Dosage: UNK
     Route: 065
  8. SILDENAFIL. [Suspect]
     Active Substance: SILDENAFIL
     Indication: PULMONARY ARTERIAL HYPERTENSION
     Dosage: UNK
     Route: 065
  9. BOSENTAN. [Suspect]
     Active Substance: BOSENTAN
     Indication: VASODILATION PROCEDURE
     Dosage: UNK
     Route: 048
  10. PENTOXIFYLLINE. [Suspect]
     Active Substance: PENTOXIFYLLINE
     Indication: VASODILATION PROCEDURE
     Dosage: UNK
     Route: 065

REACTIONS (3)
  - Sepsis [Unknown]
  - Pneumonia [Unknown]
  - Haematotoxicity [Unknown]
